FAERS Safety Report 25119314 (Version 3)
Quarter: 2025Q2

REPORT INFORMATION
  Report Type: Report from Study
  Country: US (occurrence: US)
  Receive Date: 20250325
  Receipt Date: 20250426
  Transmission Date: 20250717
  Serious: Yes (Hospitalization, Other)
  Sender: ABBVIE
  Company Number: US-ABBVIE-6191796

PATIENT
  Age: 60 Year
  Sex: Male
  Weight: 81.646 kg

DRUGS (1)
  1. SKYRIZI [Suspect]
     Active Substance: RISANKIZUMAB-RZAA
     Indication: Psoriasis
     Dosage: FORM STRENGTH: 150MG
     Route: 058
     Dates: start: 20240611, end: 20240903

REACTIONS (10)
  - Bladder cancer stage IV [Not Recovered/Not Resolved]
  - Anxiety [Recovering/Resolving]
  - Back pain [Recovering/Resolving]
  - Decreased appetite [Recovering/Resolving]
  - Pain in extremity [Recovering/Resolving]
  - Compression fracture [Recovered/Resolved]
  - Immunodeficiency [Not Recovered/Not Resolved]
  - Weight decreased [Recovered/Resolved]
  - Arthralgia [Recovering/Resolving]
  - Nerve compression [Recovered/Resolved]

NARRATIVE: CASE EVENT DATE: 20240101
